FAERS Safety Report 25371572 (Version 2)
Quarter: 2025Q3

REPORT INFORMATION
  Report Type: Spontaneous
  Country: JP (occurrence: JP)
  Receive Date: 20250529
  Receipt Date: 20250711
  Transmission Date: 20251021
  Serious: Yes (Hospitalization)
  Sender: ROCHE
  Company Number: JP-CHUGAI-2025015990

PATIENT
  Age: 8 Decade
  Sex: Female

DRUGS (1)
  1. ENSPRYNG [Suspect]
     Active Substance: SATRALIZUMAB-MWGE
     Indication: Neuromyelitis optica spectrum disorder
     Route: 058

REACTIONS (2)
  - Localised infection [Not Recovered/Not Resolved]
  - Decubitus ulcer [Recovering/Resolving]

NARRATIVE: CASE EVENT DATE: 20250401
